FAERS Safety Report 9537797 (Version 2)
Quarter: 2013Q3

REPORT INFORMATION
  Report Type: Report from Study
  Country: US (occurrence: US)
  Receive Date: 20130919
  Receipt Date: 20130919
  Transmission Date: 20140515
  Serious: No
  Sender: FDA-Public Use
  Company Number: US-ABBVIE-13P-163-1056801-00

PATIENT
  Age: 46 Year
  Sex: Female

DRUGS (13)
  1. HUMIRA [Suspect]
     Indication: COLITIS ULCERATIVE
     Route: 058
     Dates: start: 20130208, end: 20130208
  2. HUMIRA [Suspect]
     Route: 058
     Dates: start: 20130222, end: 20130222
  3. HUMIRA [Suspect]
     Route: 058
     Dates: end: 20130606
  4. ASACOL [Concomitant]
     Indication: COLITIS ULCERATIVE
     Dosage: 6/DAY
  5. CANASA [Concomitant]
     Indication: MIGRAINE
  6. OMEPRAZOLE [Concomitant]
     Indication: GASTROOESOPHAGEAL REFLUX DISEASE
  7. PROPRANOLOL [Concomitant]
     Indication: MIGRAINE
  8. FLUOXETINE [Concomitant]
     Indication: DEPRESSION
  9. IRON OTC [Concomitant]
     Indication: ANAEMIA
  10. ROIVASA [Concomitant]
     Indication: PRODUCT USED FOR UNKNOWN INDICATION
  11. KANASA [Concomitant]
     Indication: PRODUCT USED FOR UNKNOWN INDICATION
  12. RESTASIS [Concomitant]
     Indication: PRODUCT USED FOR UNKNOWN INDICATION
  13. RETIN A [Concomitant]
     Indication: PRODUCT USED FOR UNKNOWN INDICATION

REACTIONS (8)
  - Rectal haemorrhage [Unknown]
  - Drug ineffective [Unknown]
  - Nausea [Unknown]
  - Vomiting [Unknown]
  - Weight decreased [Unknown]
  - Urinary tract infection [Unknown]
  - Colitis ulcerative [Not Recovered/Not Resolved]
  - Enterocolitis haemorrhagic [Not Recovered/Not Resolved]
